FAERS Safety Report 19321878 (Version 2)
Quarter: 2021Q2

REPORT INFORMATION
  Report Type: Spontaneous
  Country: US (occurrence: US)
  Receive Date: 20210528
  Receipt Date: 20210609
  Transmission Date: 20210717
  Serious: Yes (Hospitalization, Other)
  Sender: FDA-Public Use
  Company Number: US-AMGEN-USASP2021076962

PATIENT
  Age: 78 Year
  Sex: Female

DRUGS (4)
  1. NPLATE [Suspect]
     Active Substance: ROMIPLOSTIM
     Dosage: 10 MICROGRAM/KILOGRAM, QWK
     Route: 065
  2. NPLATE [Suspect]
     Active Substance: ROMIPLOSTIM
     Indication: IMMUNE THROMBOCYTOPENIA
     Dosage: 4 TO 10 MCG/KG, QWK
     Route: 065
     Dates: start: 2019
  3. NPLATE [Suspect]
     Active Substance: ROMIPLOSTIM
     Dosage: 6 MICROGRAM/KILOGRAM, QWK
     Route: 065
     Dates: start: 20210511
  4. FOSTAMATINIB [Concomitant]
     Active Substance: FOSTAMATINIB
     Dosage: 150 MILLIGRAM

REACTIONS (4)
  - Platelet count abnormal [Unknown]
  - Therapy non-responder [Unknown]
  - Contusion [Unknown]
  - Haemorrhage [Unknown]

NARRATIVE: CASE EVENT DATE: 201912
